FAERS Safety Report 7006137-5 (Version None)
Quarter: 2010Q3

REPORT INFORMATION
  Report Type: 
  Country: None (occurrence: None)
  Receive Date: 20100921
  Receipt Date: 20100909
  Transmission Date: 20110219
  Serious: Yes (Disabling)
  Sender: FDA-Public Use
  Company Number: FR-PFIZER INC-2010113812

PATIENT
  Age: 50 Year
  Sex: Female

DRUGS (3)
  1. FELDENE [Suspect]
     Indication: RHEUMATOID ARTHRITIS
     Dosage: UNK
     Route: 048
     Dates: end: 20100527
  2. HUMIRA [Suspect]
     Indication: RHEUMATOID ARTHRITIS
     Dosage: 40 MG, EVERY 2 WEEKS
     Route: 058
     Dates: start: 20100501
  3. ETANERCEPT [Concomitant]
     Dosage: UNK
     Dates: start: 20080101, end: 20100501

REACTIONS (1)
  - DEAFNESS [None]
